FAERS Safety Report 24576301 (Version 1)
Quarter: 2024Q4

REPORT INFORMATION
  Report Type: Spontaneous
  Country: US (occurrence: None)
  Receive Date: 20241103
  Receipt Date: 20241103
  Transmission Date: 20250115
  Serious: Yes (Other)
  Sender: Public
  Company Number: None

PATIENT
  Age: 60 Year
  Sex: Female
  Weight: 76.5 kg

DRUGS (10)
  1. DUPIXENT [Suspect]
     Active Substance: DUPILUMAB
     Indication: Asthma
     Dosage: OTHER QUANTITY : 1 INJECTION(S);?OTHER FREQUENCY : BIWEEKLY;?
     Route: 058
     Dates: start: 20240903, end: 20241015
  2. QVAR [Concomitant]
     Active Substance: BECLOMETHASONE DIPROPIONATE
  3. ALBUTEROL [Concomitant]
     Active Substance: ALBUTEROL
  4. IPRATROPIUM [Concomitant]
     Active Substance: IPRATROPIUM
  5. ARMOUR THYROID [Concomitant]
     Active Substance: THYROID, PORCINE
  6. MONTELUKAST [Concomitant]
     Active Substance: MONTELUKAST
  7. ROSUVASTATIN [Concomitant]
     Active Substance: ROSUVASTATIN
  8. ZYRTEC [Concomitant]
     Active Substance: CETIRIZINE HYDROCHLORIDE
  9. NASACORT [Concomitant]
     Active Substance: TRIAMCINOLONE ACETONIDE
  10. ASTEPRO [Concomitant]
     Active Substance: AZELASTINE HYDROCHLORIDE

REACTIONS (1)
  - Platelet count decreased [None]

NARRATIVE: CASE EVENT DATE: 20241009
